FAERS Safety Report 15963021 (Version 1)
Quarter: 2019Q1

REPORT INFORMATION
  Report Type: Spontaneous
  Country: FR (occurrence: FR)
  Receive Date: 20190214
  Receipt Date: 20190214
  Transmission Date: 20190417
  Serious: Yes (Hospitalization)
  Sender: FDA-Public Use
  Company Number: FR-SA-2019SA037301

PATIENT
  Age: 68 Year
  Sex: Male
  Weight: 62 kg

DRUGS (4)
  1. DOCETAXEL. [Suspect]
     Active Substance: DOCETAXEL
     Indication: SQUAMOUS CELL CARCINOMA
     Dosage: 75 MG/M2, UNK
     Route: 041
     Dates: start: 20181024, end: 20181024
  2. FLUOROURACIL. [Suspect]
     Active Substance: FLUOROURACIL
     Dosage: 750 MG/M2, UNK
     Route: 041
     Dates: start: 20181029, end: 20181029
  3. FLUOROURACIL. [Suspect]
     Active Substance: FLUOROURACIL
     Indication: SQUAMOUS CELL CARCINOMA
     Dosage: 750 MG/M2, UNK
     Route: 041
     Dates: start: 20181024, end: 20181024
  4. CISPLATIN. [Suspect]
     Active Substance: CISPLATIN
     Indication: SQUAMOUS CELL CARCINOMA
     Dosage: 75 MG/M2, UNK
     Route: 041
     Dates: start: 20181024, end: 20181024

REACTIONS (3)
  - Mucosal ulceration [Recovering/Resolving]
  - Condition aggravated [Recovering/Resolving]
  - Palmar-plantar erythrodysaesthesia syndrome [Recovering/Resolving]

NARRATIVE: CASE EVENT DATE: 201811
